FAERS Safety Report 7953888-1 (Version None)
Quarter: 2011Q4

REPORT INFORMATION
  Report Type: 
  Country: None (occurrence: None)
  Receive Date: 20111202
  Receipt Date: 20111201
  Transmission Date: 20120403
  Serious: Yes (Hospitalization, Other)
  Sender: FDA-Public Use
  Company Number: CH-PFIZER INC-2011292790

PATIENT
  Age: 69 Year
  Sex: Female

DRUGS (11)
  1. PANTOPRAZOLE SODIUM [Concomitant]
     Dosage: UNK
  2. AMITRIPTYLINE HCL [Suspect]
     Dosage: 50 MG, 1X/DAY
     Route: 048
     Dates: end: 20110401
  3. SIMVASTATIN [Concomitant]
     Dosage: UNK
  4. PARAGOL [Concomitant]
     Dosage: UNK
  5. LYRICA [Suspect]
     Dosage: 900 MG, 1X/DAY
     Route: 048
  6. OXYCONTIN [Suspect]
     Dosage: 20 MG, 2X/DAY
     Route: 048
     Dates: end: 20110423
  7. AMITRIPTYLINE HCL [Suspect]
     Dosage: 100 MG, 1X/DAY
     Route: 048
     Dates: start: 20110401
  8. MARCUMAR [Concomitant]
     Dosage: UNK
     Route: 048
  9. OXYCODONE HCL [Suspect]
     Dosage: 5 MG, 2X/DAY AS PRESCRIBED (REAL INTAKE UNKNOWN)
     Route: 048
     Dates: end: 20110423
  10. CLONAZEPAM [Concomitant]
     Dosage: UNK
  11. BONIVA [Concomitant]
     Dosage: UNK

REACTIONS (7)
  - ALTERED STATE OF CONSCIOUSNESS [None]
  - TREMOR [None]
  - SEROTONIN SYNDROME [None]
  - DRUG ABUSE [None]
  - MYOCLONUS [None]
  - RESPIRATORY FAILURE [None]
  - CONFUSIONAL STATE [None]
